FAERS Safety Report 8433318-6 (Version None)
Quarter: 2012Q2

REPORT INFORMATION
  Report Type: 
  Country: None (occurrence: None)
  Receive Date: 20120613
  Receipt Date: 20120604
  Transmission Date: 20120825
  Serious: Yes (Other)
  Sender: FDA-Public Use
  Company Number: US-JNJFOC-20120408279

PATIENT
  Sex: Female
  Weight: 81.65 kg

DRUGS (24)
  1. VIMOVO [Concomitant]
     Dosage: 20/500 MG TABLET ONCE A DAY
     Route: 048
     Dates: start: 20110101
  2. LOESTRIN 1.5/30 [Concomitant]
     Indication: SWELLING
     Route: 048
     Dates: start: 20110101
  3. NUCYNTA ER [Suspect]
     Indication: BACK PAIN
     Dosage: PATIENT WAS TAKING EVERY 4-6 HOURLY
     Route: 048
  4. NUCYNTA ER [Suspect]
     Dosage: AS NEEDED
     Route: 048
     Dates: start: 20111001, end: 20120411
  5. NUCYNTA ER [Suspect]
     Indication: BACK PAIN
     Dosage: TWICE DAILY
     Route: 048
  6. NUCYNTA ER [Suspect]
     Dosage: ONCE A DAY AT NIGHT
     Route: 048
     Dates: start: 20120401
  7. NUCYNTA ER [Suspect]
     Dosage: AS NEEDED
     Route: 048
     Dates: start: 20120411
  8. VIMOVO [Concomitant]
     Indication: SWELLING
     Dosage: 500/20MG TWICE A DAY
     Route: 048
     Dates: start: 20110101
  9. VITAMIN D [Concomitant]
     Indication: MEDICAL DIET
     Route: 048
     Dates: start: 20110101
  10. NUCYNTA ER [Suspect]
     Route: 048
     Dates: start: 20111201
  11. NUCYNTA ER [Suspect]
     Route: 048
     Dates: start: 20120101, end: 20120322
  12. AMITRIPTYLINE HCL [Concomitant]
     Indication: SLEEP DISORDER
     Dosage: 100 MG TABLET/ 25 MG ONCE A DAY
     Route: 048
     Dates: start: 20110101
  13. NUCYNTA ER [Suspect]
     Dosage: 200 MG TWICE A DAY
     Route: 048
     Dates: start: 20120322, end: 20120401
  14. METOPROLOL TARTRATE [Concomitant]
     Indication: BLOOD PRESSURE
     Route: 065
     Dates: start: 20120301
  15. NUCYNTA ER [Suspect]
     Route: 048
  16. NUCYNTA ER [Suspect]
     Dosage: 200 MG IN 24 HOURS
     Route: 048
     Dates: start: 20120401, end: 20120514
  17. AMITRIPTYLINE HCL [Concomitant]
     Indication: PAIN
     Dosage: 100 MG TABLET/ 25 MG ONCE A DAY
     Route: 048
     Dates: start: 20110101
  18. VIMOVO [Concomitant]
     Indication: GASTRIC DISORDER
     Dosage: 20/500 MG TABLET ONCE A DAY
     Route: 048
     Dates: start: 20110101
  19. VIMOVO [Concomitant]
     Dosage: 500/20MG TWICE A DAY
     Route: 048
     Dates: start: 20110101
  20. MAGNESIUM [Concomitant]
     Route: 065
  21. NUCYNTA ER [Suspect]
     Route: 048
     Dates: start: 20120418
  22. NUCYNTA ER [Suspect]
     Dosage: 150 MG 2 IN 24 HOURS
     Route: 048
     Dates: start: 20120514
  23. ASCORBIC ACID [Concomitant]
     Indication: MEDICAL DIET
     Route: 048
     Dates: start: 20110101
  24. NUCYNTA ER [Suspect]
     Dosage: EVERY 4 HOURS
     Route: 048
     Dates: start: 20120401

REACTIONS (14)
  - HEART RATE INCREASED [None]
  - GAIT DISTURBANCE [None]
  - CHEST PAIN [None]
  - TREMOR [None]
  - DIZZINESS [None]
  - DRUG INEFFECTIVE [None]
  - PALPITATIONS [None]
  - ADVERSE EVENT [None]
  - CARDIAC FLUTTER [None]
  - DRUG ADMINISTRATION ERROR [None]
  - HYPERTENSION [None]
  - POOR QUALITY SLEEP [None]
  - INADEQUATE ANALGESIA [None]
  - FEELING HOT [None]
